FAERS Safety Report 7065512-3 (Version None)
Quarter: 2010Q4

REPORT INFORMATION
  Report Type: 
  Country: None (occurrence: None)
  Receive Date: 20101027
  Receipt Date: 20101019
  Transmission Date: 20110411
  Serious: Yes (Hospitalization)
  Sender: FDA-Public Use
  Company Number: DE-CEPHALON-2010005606

PATIENT
  Age: 34 Year
  Sex: Male
  Weight: 70 kg

DRUGS (4)
  1. TREANDA [Suspect]
     Route: 042
     Dates: start: 20100601, end: 20100922
  2. RITUXIMAB [Suspect]
     Route: 042
     Dates: start: 20100531, end: 20100921
  3. SULFAMETHOXAZOLE AND TRIMETHOPRIM [Concomitant]
     Dates: start: 20100720
  4. ACICLODAN [Concomitant]
     Dates: start: 20100531

REACTIONS (2)
  - NEUTROPHIL COUNT DECREASED [None]
  - TOOTH INFECTION [None]
